FAERS Safety Report 12388279 (Version 1)
Quarter: 2016Q2

REPORT INFORMATION
  Report Type: Spontaneous
  Country: US (occurrence: None)
  Receive Date: 20160519
  Receipt Date: 20160519
  Transmission Date: 20160815
  Serious: Yes (Other)
  Sender: FDA-Public Use
  Company Number: None

PATIENT
  Age: 42 Year
  Sex: Female

DRUGS (1)
  1. CEFTAZIDIME 1 GRAM VIAL SANDOZ [Suspect]
     Active Substance: CEFTAZIDIME
     Indication: PNEUMONIA
     Route: 042
     Dates: start: 20160419, end: 20160423

REACTIONS (2)
  - Dyspnoea [None]
  - Rash [None]

NARRATIVE: CASE EVENT DATE: 20160423
